FAERS Safety Report 5278106-7 (Version None)
Quarter: 2007Q1

REPORT INFORMATION
  Report Type: 
  Country: None (occurrence: None)
  Receive Date: 20061213
  Receipt Date: 20051025
  Transmission Date: 20070707
  Serious: No
  Sender: FDA-Public Use
  Company Number: 2005UW16056

PATIENT
  Age: 18 Year
  Sex: Male
  Weight: 52.61 kg

DRUGS (2)
  1. SEROQUEL [Suspect]
     Indication: SLEEP DISORDER
     Dosage: UP TO 200 MG/DAY
  2. ULTRAM [Suspect]

REACTIONS (1)
  - CONVULSION [None]
